FAERS Safety Report 24748541 (Version 2)
Quarter: 2024Q4

REPORT INFORMATION
  Report Type: Spontaneous
  Country: FR (occurrence: FR)
  Receive Date: 20241218
  Receipt Date: 20241220
  Transmission Date: 20250115
  Serious: Yes (Death)
  Sender: AMGEN
  Company Number: FR-AMGEN-FRASP2024244798

PATIENT
  Sex: Male

DRUGS (3)
  1. KYPROLIS [Suspect]
     Active Substance: CARFILZOMIB
     Indication: Plasma cell myeloma refractory
     Dosage: 56 MILLIGRAM/SQ. METER, QWK (WEEKLY)
     Route: 065
     Dates: start: 202407
  2. POMALIDOMIDE [Suspect]
     Active Substance: POMALIDOMIDE
     Indication: Plasma cell myeloma refractory
     Dosage: UNK
     Route: 065
     Dates: start: 2024
  3. DEXAMETHASONE [Suspect]
     Active Substance: DEXAMETHASONE
     Indication: Plasma cell myeloma refractory
     Dosage: UNK
     Route: 065
     Dates: start: 2024

REACTIONS (2)
  - Death [Fatal]
  - Off label use [Unknown]

NARRATIVE: CASE EVENT DATE: 20240101
